FAERS Safety Report 14229525 (Version 1)
Quarter: 2017Q4

REPORT INFORMATION
  Report Type: Spontaneous
  Country: US (occurrence: None)
  Receive Date: 20171127
  Receipt Date: 20171127
  Transmission Date: 20180321
  Serious: Yes (Hospitalization)
  Sender: FDA-Public Use
  Company Number: None

PATIENT
  Age: 74 Year
  Sex: Male

DRUGS (1)
  1. CIPROFLOXACIN. [Suspect]
     Active Substance: CIPROFLOXACIN
     Indication: NEUROGENIC BLADDER
     Dates: start: 20170914, end: 20170919

REACTIONS (2)
  - Renal disorder [None]
  - Renal tubular necrosis [None]

NARRATIVE: CASE EVENT DATE: 20170919
